FAERS Safety Report 16930344 (Version 2)
Quarter: 2019Q4

REPORT INFORMATION
  Report Type: Spontaneous
  Country: US (occurrence: US)
  Receive Date: 20191017
  Receipt Date: 20191220
  Transmission Date: 20200122
  Serious: No
  Sender: FDA-Public Use
  Company Number: US-PFIZER INC-2019276336

PATIENT
  Age: 10 Year
  Sex: Male

DRUGS (2)
  1. GENOTROPIN [Suspect]
     Active Substance: SOMATROPIN
     Dosage: 0.4 MG, UNK
     Dates: start: 201908
  2. GENOTROPIN [Suspect]
     Active Substance: SOMATROPIN
     Dosage: 0.4MG, 6 DAYS A WEEK FOR 1ST MONTH, 2ND MONTH 0.9MG 6 DAYS A WEEK, 3RD MONTH (MAINTENANCE) 1.4MG

REACTIONS (2)
  - Product prescribing error [Unknown]
  - Malaise [Unknown]
